FAERS Safety Report 5811150-7 (Version None)
Quarter: 2008Q3

REPORT INFORMATION
  Report Type: 
  Country: None (occurrence: None)
  Receive Date: 20080711
  Receipt Date: 20080314
  Transmission Date: 20090109
  Serious: No
  Sender: FDA-Public Use
  Company Number: 2008BM000050

PATIENT
  Age: 3 Year
  Sex: Female

DRUGS (2)
  1. KUVAN [Suspect]
     Indication: PHENYLKETONURIA
     Dosage: TABLET, 100MG
     Dates: start: 20080310, end: 20080312
  2. KUVAN [Suspect]
     Indication: PHENYLKETONURIA
     Dosage: TABLET, 100MG
     Dates: start: 20080316

REACTIONS (5)
  - CONSTIPATION [None]
  - DIARRHOEA [None]
  - HYPOPHAGIA [None]
  - INFLUENZA [None]
  - PYREXIA [None]
